FAERS Safety Report 10405622 (Version 1)
Quarter: 2014Q3

REPORT INFORMATION
  Report Type: Report from Study
  Country: US (occurrence: US)
  Receive Date: 20140825
  Receipt Date: 20140825
  Transmission Date: 20150326
  Serious: Yes (Other)
  Sender: FDA-Public Use
  Company Number: US-TAKEDA-2014MPI002202

PATIENT
  Age: 52 Year
  Sex: Female
  Weight: 61.6 kg

DRUGS (2)
  1. VELCADE [Suspect]
     Active Substance: BORTEZOMIB
     Indication: PLASMA CELL MYELOMA
     Dosage: 3.5 MG, 2/WEEK, Q 2 WEEKS
     Route: 042
     Dates: start: 20130702, end: 20140501
  2. OXYCODONE [Suspect]
     Active Substance: OXYCODONE
     Indication: PLASMA CELL MYELOMA
     Route: 048

REACTIONS (1)
  - Overdose [Recovered/Resolved]

NARRATIVE: CASE EVENT DATE: 20140412
